FAERS Safety Report 9856413 (Version 1)
Quarter: 2014Q1

REPORT INFORMATION
  Report Type: Spontaneous
  Country: US (occurrence: US)
  Receive Date: 20140130
  Receipt Date: 20140130
  Transmission Date: 20141002
  Serious: Yes (Other)
  Sender: FDA-Public Use
  Company Number: US-TEVA-458638USA

PATIENT
  Sex: 0

DRUGS (1)
  1. PARICALCITOL [Suspect]

REACTIONS (1)
  - Hallucination, auditory [Unknown]
